FAERS Safety Report 15462313 (Version 1)
Quarter: 2018Q4

REPORT INFORMATION
  Report Type: Spontaneous
  Country: NO (occurrence: NO)
  Receive Date: 20181004
  Receipt Date: 20181004
  Transmission Date: 20190204
  Serious: Yes (Death, Hospitalization, Other)
  Sender: FDA-Public Use
  Company Number: NO-ASTRAZENECA-2018SF24362

PATIENT
  Age: 71 Year
  Sex: Female

DRUGS (6)
  1. LETROZOLE. [Suspect]
     Active Substance: LETROZOLE
     Indication: BREAST CANCER METASTATIC
     Route: 065
  2. FULVESTRANT. [Suspect]
     Active Substance: FULVESTRANT
     Indication: BREAST CANCER METASTATIC
     Dosage: 250.0MG UNKNOWN
     Route: 030
  3. KISQALI [Suspect]
     Active Substance: RIBOCICLIB
     Indication: BREAST CANCER METASTATIC
     Dosage: UNK
  4. FULVESTRANT. [Suspect]
     Active Substance: FULVESTRANT
     Indication: BREAST CANCER METASTATIC
     Dosage: 500.0MG UNKNOWN
     Route: 030
  5. DENOSUMAB [Suspect]
     Active Substance: DENOSUMAB
     Indication: BREAST CANCER METASTATIC
     Dosage: UNK
     Route: 065
  6. WARFARIN [Concomitant]
     Active Substance: WARFARIN
     Indication: PROPHYLAXIS
     Dosage: UNK

REACTIONS (17)
  - Death [Fatal]
  - Anaemia [Fatal]
  - Cognitive disorder [Fatal]
  - Blood bilirubin increased [Fatal]
  - Hepatotoxicity [Fatal]
  - Upper gastrointestinal haemorrhage [Fatal]
  - Diarrhoea [Fatal]
  - Alanine aminotransferase increased [Fatal]
  - Blood lactate dehydrogenase increased [Fatal]
  - Deep vein thrombosis [Fatal]
  - Malignant neoplasm progression [Fatal]
  - Breast cancer metastatic [Fatal]
  - Influenza [Fatal]
  - Treatment noncompliance [Fatal]
  - General physical health deterioration [Fatal]
  - Gamma-glutamyltransferase increased [Fatal]
  - Acute kidney injury [Fatal]

NARRATIVE: CASE EVENT DATE: 201711
